FAERS Safety Report 16802009 (Version 1)
Quarter: 2019Q3

REPORT INFORMATION
  Report Type: Spontaneous
  Country: US (occurrence: US)
  Receive Date: 20190912
  Receipt Date: 20190912
  Transmission Date: 20191005
  Serious: Yes (Other)
  Sender: FDA-Public Use
  Company Number: US-SHIRE-US201929091

PATIENT
  Age: 46 Year
  Sex: Female

DRUGS (1)
  1. 426 (MIDODRINE) [Suspect]
     Active Substance: MIDODRINE
     Indication: PRODUCT USED FOR UNKNOWN INDICATION
     Dosage: 40-50 UNKNOWN UNITS
     Route: 065

REACTIONS (3)
  - Malignant hypertension [Unknown]
  - Intentional overdose [Unknown]
  - Bradycardia [Unknown]
